FAERS Safety Report 7671372-X (Version None)
Quarter: 2011Q3

REPORT INFORMATION
  Report Type: 
  Country: None (occurrence: None)
  Receive Date: 20110809
  Receipt Date: 20110803
  Transmission Date: 20111222
  Serious: Yes (Hospitalization)
  Sender: FDA-Public Use
  Company Number: US-B.I. PHARMACEUTICALS,INC./RIDGEFIELD-2011-BP-10512BP

PATIENT
  Sex: Female

DRUGS (10)
  1. LISINOPRIL [Concomitant]
     Indication: HYPERTENSION
     Dosage: 20 MG
  2. FLOVENT [Concomitant]
     Indication: ASTHMA
  3. ALLOPURINOL [Concomitant]
     Indication: GOUT
     Dosage: 200 MG
  4. DESMOPRESSIN [Suspect]
     Indication: BLADDER PROLAPSE
     Dosage: 0.2 MG
  5. PANTOPRAZOLE [Concomitant]
     Indication: GASTROOESOPHAGEAL REFLUX DISEASE
  6. INDOCINE [Concomitant]
     Indication: GOUT
     Dosage: 25 MG
  7. ALBUTEROL SULFATE AUTOHALER [Concomitant]
     Indication: ASTHMA
  8. PRADAXA [Suspect]
     Indication: THROMBOSIS PROPHYLAXIS
     Dosage: 300 MG
     Route: 048
     Dates: start: 20110101, end: 20110403
  9. PRADAXA [Suspect]
     Route: 048
     Dates: start: 20110418
  10. COLACE [Concomitant]
     Indication: CONSTIPATION

REACTIONS (12)
  - RECTAL HAEMORRHAGE [None]
  - OCCULT BLOOD POSITIVE [None]
  - CONJUNCTIVAL PALLOR [None]
  - DIARRHOEA [None]
  - CONSTIPATION [None]
  - FATIGUE [None]
  - DIVERTICULITIS [None]
  - HYPONATRAEMIA [None]
  - DIZZINESS [None]
  - HEADACHE [None]
  - RENAL FAILURE ACUTE [None]
  - HYPERTENSION [None]
